FAERS Safety Report 5763550-1 (Version None)
Quarter: 2008Q2

REPORT INFORMATION
  Report Type: 
  Country: None (occurrence: None)
  Receive Date: 20080610
  Receipt Date: 20080530
  Transmission Date: 20081010
  Serious: Yes (Other)
  Sender: FDA-Public Use
  Company Number: US-JNJFOC-20080205754

PATIENT
  Sex: Female
  Weight: 90.72 kg

DRUGS (10)
  1. FENTANYL TRANSDERMAL SYSTEM [Suspect]
     Indication: ARTHRALGIA
     Route: 062
  2. SYNTHROID [Concomitant]
     Indication: HYPERTHYROIDISM
     Route: 048
  3. TYLENOL EXTRA STRENGTH [Concomitant]
     Indication: PAIN
     Route: 048
  4. TYLENOL PM [Concomitant]
     Indication: SLEEP DISORDER
     Dosage: AT NIGHT
     Route: 048
  5. PERCOCET [Concomitant]
     Indication: PAIN
     Dosage: 5/325, 1 OR 2 EVERY 4 TO 6 HOURS
     Route: 048
  6. LANTUS [Concomitant]
     Indication: DIABETES MELLITUS
     Dosage: 32U
     Route: 058
  7. ASPIRIN [Concomitant]
     Indication: DRUG USE FOR UNKNOWN INDICATION
     Route: 048
  8. LEXAPRO [Concomitant]
     Indication: DEPRESSION
     Route: 048
  9. LANTUS [Concomitant]
  10. AMBIEN CR [Concomitant]
     Indication: INSOMNIA

REACTIONS (3)
  - CYSTITIS [None]
  - HALLUCINATION [None]
  - INSOMNIA [None]
